FAERS Safety Report 7933292-2 (Version None)
Quarter: 2011Q4

REPORT INFORMATION
  Report Type: 
  Country: None (occurrence: None)
  Receive Date: 20111122
  Receipt Date: 20111115
  Transmission Date: 20120403
  Serious: Yes (Hospitalization)
  Sender: FDA-Public Use
  Company Number: US-SANOFI-AVENTIS-2011SA075420

PATIENT
  Sex: Male

DRUGS (1)
  1. LANTUS [Suspect]
     Route: 058

REACTIONS (1)
  - DYSPNOEA [None]
